FAERS Safety Report 7211668-9 (Version None)
Quarter: 2011Q1

REPORT INFORMATION
  Report Type: 
  Country: None (occurrence: None)
  Receive Date: 20110105
  Receipt Date: 20101112
  Transmission Date: 20110831
  Serious: Yes (Other)
  Sender: FDA-Public Use
  Company Number: DK-AMGEN-QUU410067

PATIENT

DRUGS (1)
  1. ETANERCEPT [Suspect]
     Indication: PSORIATIC ARTHROPATHY
     Dosage: 50 MG, QWK
     Route: 058
     Dates: start: 20091105

REACTIONS (4)
  - PHOTOPHOBIA [None]
  - HYPOAESTHESIA FACIAL [None]
  - HEADACHE [None]
  - HYPOAESTHESIA [None]
